FAERS Safety Report 5856468-7 (Version None)
Quarter: 2008Q3

REPORT INFORMATION
  Report Type: 
  Country: None (occurrence: None)
  Receive Date: 20080825
  Receipt Date: 20080527
  Transmission Date: 20090109
  Serious: No
  Sender: FDA-Public Use
  Company Number: A0728312A

PATIENT
  Age: 2 Year
  Sex: Female

DRUGS (3)
  1. VERAMYST [Suspect]
     Route: 045
     Dates: start: 20080415
  2. PRILOSEC [Suspect]
  3. ALLEGRA [Concomitant]

REACTIONS (1)
  - HYPERSENSITIVITY [None]
